FAERS Safety Report 7945902-4 (Version None)
Quarter: 2011Q4

REPORT INFORMATION
  Report Type: 
  Country: None (occurrence: None)
  Receive Date: 20111129
  Receipt Date: 20111123
  Transmission Date: 20120403
  Serious: No
  Sender: FDA-Public Use
  Company Number: US-B.I. PHARMACEUTICALS,INC./RIDGEFIELD-2011-BP-26823BP

PATIENT
  Sex: Male

DRUGS (10)
  1. SOMA [Concomitant]
     Indication: LIMB DISCOMFORT
  2. OXYCODONE HCL AND ACETAMINOPHEN [Concomitant]
     Indication: SCIATIC NERVE INJURY
  3. SPIRIVA [Suspect]
     Indication: BRONCHITIS
     Dosage: 18 MCG
     Route: 055
     Dates: start: 20111123, end: 20111123
  4. SOMA [Concomitant]
     Indication: SCIATIC NERVE INJURY
  5. MEDICATION NOT FURTHER SPECIFIED [Concomitant]
     Indication: THYROID DISORDER
  6. SYSTANE ULTRA [Concomitant]
     Indication: GLAUCOMA
  7. ANTARA (MICRONIZED) [Concomitant]
     Indication: BLOOD CHOLESTEROL INCREASED
  8. SOMA [Concomitant]
     Indication: BACK DISORDER
  9. OXYCODONE HCL AND ACETAMINOPHEN [Concomitant]
     Indication: BACK DISORDER
  10. OXYCODONE HCL AND ACETAMINOPHEN [Concomitant]
     Indication: LIMB DISCOMFORT

REACTIONS (3)
  - VASODILATATION [None]
  - EYE PAIN [None]
  - EYE SWELLING [None]
